FAERS Safety Report 4305572-3 (Version None)
Quarter: 2004Q1

REPORT INFORMATION
  Report Type: 
  Country: None (occurrence: None)
  Receive Date: 20040226
  Receipt Date: 20031203
  Transmission Date: 20041129
  Serious: Yes (Hospitalization)
  Sender: FDA-Public Use
  Company Number: US-BRISTOL-MYERS SQUIBB COMPANY-12449278

PATIENT
  Age: 39 Year
  Sex: Female

DRUGS (3)
  1. ABILIFY [Suspect]
     Indication: SCHIZOPHRENIA
     Dosage: INCREASED TO 30 MG/DAY ON 21-NOV-2003
     Route: 048
     Dates: start: 20031107, end: 20031201
  2. ABILIFY [Suspect]
     Indication: PSYCHOTIC DISORDER
     Dosage: INCREASED TO 30 MG/DAY ON 21-NOV-2003
     Route: 048
     Dates: start: 20031107, end: 20031201
  3. ATIVAN [Concomitant]
     Dates: start: 20031104, end: 20031108

REACTIONS (5)
  - DRUG INEFFECTIVE [None]
  - FATIGUE [None]
  - HALLUCINATION [None]
  - SOCIAL AVOIDANT BEHAVIOUR [None]
  - URINARY TRACT INFECTION [None]
